FAERS Safety Report 4556765-1 (Version None)
Quarter: 2005Q1

REPORT INFORMATION
  Report Type: 
  Country: None (occurrence: None)
  Receive Date: 20050114
  Receipt Date: 20050104
  Transmission Date: 20050727
  Serious: Yes (Other)
  Sender: FDA-Public Use
  Company Number: 2004105413

PATIENT
  Age: 43 Year
  Sex: Male
  Weight: 99.7913 kg

DRUGS (4)
  1. DOSTINEX [Suspect]
     Indication: PITUITARY TUMOUR BENIGN
     Dosage: (0.5 MG, 4 TIMES A WEEK), ORAL
     Route: 048
     Dates: start: 20010101
  2. DOSTINEX [Suspect]
     Indication: PITUITARY TUMOUR BENIGN
     Dosage: (0.5 MG, 6 TIMES A WEEK), ORAL
     Route: 048
     Dates: start: 20010101
  3. HYDROCORTISONE [Concomitant]
  4. LEVOTHYROXINE SODIUM [Concomitant]

REACTIONS (9)
  - ANXIETY [None]
  - ARTHRALGIA [None]
  - DEPRESSION [None]
  - DIZZINESS [None]
  - FEAR [None]
  - GASTROOESOPHAGEAL REFLUX DISEASE [None]
  - MYALGIA [None]
  - NERVOUSNESS [None]
  - VISION BLURRED [None]
